FAERS Safety Report 18175097 (Version 1)
Quarter: 2020Q3

REPORT INFORMATION
  Report Type: Spontaneous
  Country: DE (occurrence: DE)
  Receive Date: 20200820
  Receipt Date: 20200820
  Transmission Date: 20201103
  Serious: Yes (Other)
  Sender: FDA-Public Use
  Company Number: DE-TEVA-2020-DE-1817311

PATIENT
  Age: 55 Year
  Sex: Female

DRUGS (1)
  1. COTRIM?CT 800 MG/160 MG TABLETTEN [Suspect]
     Active Substance: SULFAMETHOXAZOLE\TRIMETHOPRIM
     Dosage: CONTAINS 800 MG SULFAMETHOXAZOLE AND 160 MG TRIMETHOPRIM, USED FOR 5 DAYS
     Route: 048
     Dates: start: 2020, end: 202008

REACTIONS (5)
  - Suicidal ideation [Unknown]
  - Feeling of body temperature change [Unknown]
  - Mental disorder [Unknown]
  - Skin exfoliation [Unknown]
  - Erythema [Unknown]

NARRATIVE: CASE EVENT DATE: 202008
